FAERS Safety Report 14793882 (Version 4)
Quarter: 2018Q3

REPORT INFORMATION
  Report Type: Spontaneous
  Country: US (occurrence: US)
  Receive Date: 20180423
  Receipt Date: 20180823
  Transmission Date: 20181010
  Serious: Yes (Life-Threatening, Other)
  Sender: FDA-Public Use
  Company Number: US-ELI_LILLY_AND_COMPANY-US201804010074

PATIENT
  Sex: Female

DRUGS (2)
  1. BASAGLAR [Suspect]
     Active Substance: INSULIN GLARGINE
     Dosage: 4 U, DAILY
     Route: 058
     Dates: start: 2017
  2. BASAGLAR [Suspect]
     Active Substance: INSULIN GLARGINE
     Indication: TYPE 1 DIABETES MELLITUS
     Dosage: 4 U, DAILY
     Route: 058
     Dates: start: 2017

REACTIONS (6)
  - Diabetic coma [Unknown]
  - Drug ineffective [Not Recovered/Not Resolved]
  - Blood glucose increased [Recovered/Resolved]
  - Hyperhidrosis [Unknown]
  - Drug effect decreased [Unknown]
  - Blood glucose decreased [Unknown]
